FAERS Safety Report 15667463 (Version 2)
Quarter: 2019Q2

REPORT INFORMATION
  Report Type: Spontaneous
  Country: US (occurrence: US)
  Receive Date: 20181128
  Receipt Date: 20190529
  Transmission Date: 20190711
  Serious: No
  Sender: FDA-Public Use
  Company Number: US-PFIZER INC-2018481502

PATIENT
  Age: 68 Year
  Sex: Male

DRUGS (1)
  1. XELJANZ [Suspect]
     Active Substance: TOFACITINIB CITRATE
     Dosage: 5 MG, DAILY (1 PILL A DAY)
     Dates: end: 20190507

REACTIONS (2)
  - Swelling [Unknown]
  - Intentional product misuse [Unknown]
